FAERS Safety Report 21203637 (Version 1)
Quarter: 2022Q3

REPORT INFORMATION
  Report Type: Spontaneous
  Country: JP (occurrence: JP)
  Receive Date: 20220811
  Receipt Date: 20220811
  Transmission Date: 20221027
  Serious: Yes (Other)
  Sender: FDA-Public Use
  Company Number: JP-JNJFOC-20220811441

PATIENT
  Age: 1 Year
  Sex: Female

DRUGS (3)
  1. OPSUMIT [Suspect]
     Active Substance: MACITENTAN
     Indication: Hypoplastic left heart syndrome
     Dosage: DOSE UNKNOWN
     Route: 048
  2. SILDENAFIL CITRATE [Concomitant]
     Active Substance: SILDENAFIL CITRATE
     Indication: Hypoplastic left heart syndrome
     Dosage: DOSE UNKNOWN
     Route: 048
  3. NITRIC OXIDE [Concomitant]
     Active Substance: NITRIC OXIDE
     Dosage: DOSE UNKNOWN
     Route: 055

REACTIONS (3)
  - Interstitial lung disease [Recovering/Resolving]
  - Off label use [Unknown]
  - Off label use [Unknown]
